FAERS Safety Report 12627385 (Version 2)
Quarter: 2017Q2

REPORT INFORMATION
  Report Type: Report from Study
  Country: None (occurrence: BR)
  Receive Date: 20160805
  Receipt Date: 20170406
  Transmission Date: 20170830
  Serious: Yes (Other)
  Sender: FDA-Public Use
  Company Number: BR-ABBVIE-16P-020-1694646-00

PATIENT
  Sex: Male
  Weight: 71 kg

DRUGS (2)
  1. PANTOPRAZOLE [Concomitant]
     Active Substance: PANTOPRAZOLE
     Indication: GASTRIC DISORDER
     Dosage: DAILY DOSE: 0.4 MILLIGRAM; LUNCH/DINNER
     Dates: start: 2013
  2. SYNTHROID [Suspect]
     Active Substance: LEVOTHYROXINE SODIUM
     Indication: HYPOTHYROIDISM
     Dosage: DAILY DOSE: 50 MCG ON FASTING
     Route: 048
     Dates: start: 2008

REACTIONS (6)
  - Restless legs syndrome [Recovering/Resolving]
  - Aortic valve stenosis [Recovered/Resolved]
  - Blood triglycerides increased [Recovered/Resolved]
  - Blood pressure decreased [Recovered/Resolved]
  - Malaise [Recovered/Resolved]
  - Syncope [Recovered/Resolved]

NARRATIVE: CASE EVENT DATE: 2013
